FAERS Safety Report 24254010 (Version 1)
Quarter: 2024Q3

REPORT INFORMATION
  Report Type: Spontaneous
  Country: CN (occurrence: CN)
  Receive Date: 20240827
  Receipt Date: 20240827
  Transmission Date: 20241017
  Serious: Yes (Other)
  Sender: UCB
  Company Number: CN-UCBSA-2022009383

PATIENT
  Sex: Female
  Weight: 21 kg

DRUGS (2)
  1. KEPPRA [Suspect]
     Active Substance: LEVETIRACETAM
     Indication: Rett syndrome
     Dosage: UNK
  2. TOPIRAMATE [Concomitant]
     Active Substance: TOPIRAMATE
     Indication: Rett syndrome

REACTIONS (2)
  - Seizure [Recovering/Resolving]
  - Product use in unapproved indication [Unknown]
